FAERS Safety Report 5887714-1 (Version None)
Quarter: 2008Q3

REPORT INFORMATION
  Report Type: 
  Country: None (occurrence: None)
  Receive Date: 20080918
  Receipt Date: 20080908
  Transmission Date: 20090109
  Serious: Yes (Death)
  Sender: FDA-Public Use
  Company Number: JP-ABBOTT-08P-087-0476711-00

PATIENT
  Age: 65 Year
  Sex: Male

DRUGS (9)
  1. LEUPROLIDE ACETATE [Suspect]
     Indication: PROSTATE CANCER STAGE IV
     Route: 058
     Dates: start: 20061109, end: 20080410
  2. BICALUTAMIDE [Concomitant]
     Indication: PROSTATE CANCER STAGE IV
     Route: 048
     Dates: start: 20060926, end: 20070110
  3. TAMSULOSIN HCL [Concomitant]
     Indication: BENIGN PROSTATIC HYPERPLASIA
     Route: 048
     Dates: start: 20060922, end: 20080527
  4. FLUTAMIDE [Concomitant]
     Indication: PROSTATE CANCER STAGE IV
     Route: 048
     Dates: start: 20070201, end: 20070214
  5. ESTRAMUSTINE PHOSPHATE SODIUM [Concomitant]
     Indication: PROSTATE CANCER STAGE IV
     Route: 048
     Dates: start: 20070215, end: 20070228
  6. ESTRAMUSTINE PHOSPHATE SODIUM [Concomitant]
     Route: 048
     Dates: start: 20070301, end: 20070708
  7. ESTRAMUSTINE PHOSPHATE SODIUM [Concomitant]
     Route: 048
     Dates: start: 20070821, end: 20080527
  8. ETHINYL ESTRADIOL TAB [Concomitant]
     Indication: PROSTATE CANCER STAGE IV
     Route: 048
     Dates: start: 20070709, end: 20070820
  9. DOCETAXEL [Concomitant]
     Indication: PROSTATE CANCER STAGE IV
     Route: 050
     Dates: start: 20071120, end: 20080212

REACTIONS (1)
  - PROSTATE CANCER [None]
